FAERS Safety Report 9336407 (Version 1)
Quarter: 2013Q2

REPORT INFORMATION
  Report Type: Spontaneous
  Country: CN (occurrence: CN)
  Receive Date: 20130607
  Receipt Date: 20130607
  Transmission Date: 20140414
  Serious: Yes (Other)
  Sender: FDA-Public Use
  Company Number: CN-JNJFOC-20130602535

PATIENT
  Sex: Female
  Weight: 17 kg

DRUGS (2)
  1. INFANTS^ TYLENOL [Suspect]
     Indication: UPPER RESPIRATORY TRACT INFECTION
     Route: 048
     Dates: start: 20120131, end: 20120201
  2. CHINESE MEDICATION [Suspect]
     Indication: UPPER RESPIRATORY TRACT INFECTION
     Dosage: PUDILIAN ANTIPHLOGOSIS TABLETS
     Route: 048
     Dates: start: 20120131, end: 20120201

REACTIONS (1)
  - Thrombocytopenia [Not Recovered/Not Resolved]
